FAERS Safety Report 6829452-4 (Version None)
Quarter: 2010Q3

REPORT INFORMATION
  Report Type: 
  Country: None (occurrence: None)
  Receive Date: 20100709
  Receipt Date: 20070312
  Transmission Date: 20110219
  Serious: No
  Sender: FDA-Public Use
  Company Number: US-PFIZER INC-2007019949

PATIENT
  Sex: Female
  Weight: 58.97 kg

DRUGS (2)
  1. CHANTIX [Suspect]
     Indication: SMOKING CESSATION THERAPY
     Dates: start: 20070306
  2. ANTI-ASTHMATICS [Concomitant]

REACTIONS (3)
  - ABNORMAL DREAMS [None]
  - HYPERHIDROSIS [None]
  - SLEEP DISORDER [None]
